FAERS Safety Report 4456983-7 (Version None)
Quarter: 2004Q3

REPORT INFORMATION
  Report Type: 
  Country: None (occurrence: None)
  Receive Date: 20040923
  Receipt Date: 20040830
  Transmission Date: 20050211
  Serious: Yes (Life-Threatening, Hospitalization)
  Sender: FDA-Public Use
  Company Number: DE-BRISTOL-MYERS SQUIBB COMPANY-12686226

PATIENT
  Age: 68 Year
  Sex: Male

DRUGS (6)
  1. MITOMYCIN-C BULK POWDER [Suspect]
     Indication: BLADDER NEOPLASM
     Route: 043
     Dates: start: 20030923, end: 20030923
  2. METAMIZOLE [Suspect]
     Indication: BLADDER NEOPLASM
     Route: 042
     Dates: start: 20030923, end: 20030923
  3. PROPOFOL [Concomitant]
     Dates: start: 20030923, end: 20030923
  4. MIVACRON [Concomitant]
     Dates: start: 20030923, end: 20030923
  5. REMIFENTANIL HCL [Concomitant]
     Dates: start: 20030923, end: 20030923
  6. ACETYLSALICYLIC ACID [Concomitant]

REACTIONS (1)
  - ANAPHYLACTIC REACTION [None]
